FAERS Safety Report 19762460 (Version 1)
Quarter: 2021Q3

REPORT INFORMATION
  Report Type: Spontaneous
  Country: US (occurrence: US)
  Receive Date: 20210829
  Receipt Date: 20210829
  Transmission Date: 20211014
  Serious: Yes (Other)
  Sender: FDA-Public Use
  Company Number: None

PATIENT
  Age: 62 Year
  Sex: Female

DRUGS (1)
  1. BASAGLAR KWIKPEN [Suspect]
     Active Substance: INSULIN GLARGINE
     Indication: DIABETES MELLITUS
     Dosage: ?          OTHER ROUTE:SUB Q INJECTION?
     Dates: start: 20210828, end: 20210829

REACTIONS (4)
  - Incorrect dose administered by device [None]
  - Device failure [None]
  - Incorrect dose administered [None]
  - Product quality issue [None]

NARRATIVE: CASE EVENT DATE: 20210829
